FAERS Safety Report 4323085-X (Version None)
Quarter: 2004Q1

REPORT INFORMATION
  Report Type: 
  Country: None (occurrence: None)
  Receive Date: 20040322
  Receipt Date: 20040317
  Transmission Date: 20041129
  Serious: Yes (Hospitalization, Disabling, Other)
  Sender: FDA-Public Use
  Company Number: NSADSS2002036094

PATIENT
  Age: 55 Year
  Sex: Female
  Weight: 81.6475 kg

DRUGS (17)
  1. REMICADE [Suspect]
     Indication: CROHN'S DISEASE
     Dosage: 1 IN 1 AS NECESSARY; INTRAVENOUS DRIP (SEE IMAGE)
     Route: 041
     Dates: start: 20020410, end: 20020410
  2. REMICADE [Suspect]
     Indication: CROHN'S DISEASE
     Dosage: 1 IN 1 AS NECESSARY; INTRAVENOUS DRIP (SEE IMAGE)
     Route: 041
     Dates: start: 20020709, end: 20020709
  3. REMICADE [Suspect]
     Indication: CROHN'S DISEASE
     Dosage: 1 IN 1 AS NECESSARY; INTRAVENOUS DRIP (SEE IMAGE)
     Route: 041
     Dates: start: 20020821, end: 20020821
  4. NEURONTIN [Concomitant]
  5. ASACOL [Concomitant]
  6. MERCAPTOPURINE [Concomitant]
  7. REMERON [Concomitant]
  8. IMIPRAMINE [Concomitant]
  9. INHALER (ANTI-ASTHMATICS) [Concomitant]
  10. ADVAIL INHALER (SERETIDE MITE) [Concomitant]
  11. ZYRETEC (CETIRIZINE HYDROCHLORIDE) [Concomitant]
  12. ALPHAGAN (BROMONIDINE TARTRATE) [Concomitant]
  13. XANAX [Concomitant]
  14. AMBIEN [Concomitant]
  15. ALBUTEROL [Concomitant]
  16. ZELNORM [Concomitant]
  17. EFFEXOR [Concomitant]

REACTIONS (9)
  - BRAIN STEM HAEMORRHAGE [None]
  - CEREBROVASCULAR ACCIDENT [None]
  - COMA [None]
  - LACUNAR INFARCTION [None]
  - LOSS OF CONSCIOUSNESS [None]
  - NUCLEAR MAGNETIC RESONANCE IMAGING BRAIN ABNORMAL [None]
  - QUADRIPLEGIA [None]
  - TRANSIENT ISCHAEMIC ATTACK [None]
  - VERTIGO [None]
